FAERS Safety Report 15164009 (Version 3)
Quarter: 2018Q4

REPORT INFORMATION
  Report Type: Report from Study
  Country: JP (occurrence: JP)
  Receive Date: 20180719
  Receipt Date: 20181112
  Transmission Date: 20190204
  Serious: Yes (Other)
  Sender: FDA-Public Use
  Company Number: JP-ACTELION-A-CH2018-172507

PATIENT
  Age: 73 Year
  Sex: Female

DRUGS (15)
  1. NU-LOTAN [Concomitant]
     Active Substance: LOSARTAN POTASSIUM
  2. JUVELA N [Concomitant]
     Active Substance: TOCOPHERYL NICOTINATE, D-.ALPHA.
  3. PROSTANDIN [Concomitant]
  4. HIRUDOID [Concomitant]
     Active Substance: GLYCOSAMINOGLYCANS
  5. TRACLEER [Suspect]
     Active Substance: BOSENTAN
     Dosage: 62.5 MG, QD
     Route: 048
     Dates: start: 20160830, end: 201610
  6. TRACLEER [Suspect]
     Active Substance: BOSENTAN
     Dosage: 62.5 MG, QD
     Route: 048
     Dates: start: 20161101, end: 20170105
  7. TAKEPRON [Concomitant]
     Active Substance: LANSOPRAZOLE
  8. ALFAROL [Concomitant]
     Active Substance: ALFACALCIDOL
  9. DORNER [Concomitant]
     Active Substance: BERAPROST SODIUM
  10. TRACLEER [Suspect]
     Active Substance: BOSENTAN
     Dosage: 62.5 MG, BID
     Route: 048
     Dates: start: 20160726, end: 20160829
  11. PETROLATUM SALICYLATE [Concomitant]
  12. TRACLEER [Suspect]
     Active Substance: BOSENTAN
     Dosage: 125 MG, BID
     Route: 048
     Dates: start: 20160628, end: 20160725
  13. FIBLAST [Concomitant]
  14. TRACLEER [Suspect]
     Active Substance: BOSENTAN
     Indication: SCLERODERMA ASSOCIATED DIGITAL ULCER
     Dosage: 62.5 MG, BID
     Route: 048
     Dates: start: 20160531, end: 20160627
  15. MUCOSTA [Concomitant]
     Active Substance: REBAMIPIDE

REACTIONS (4)
  - Oedema peripheral [Recovering/Resolving]
  - Cardiac failure [Recovering/Resolving]
  - Peripheral swelling [Recovering/Resolving]
  - Pleural effusion [Recovering/Resolving]

NARRATIVE: CASE EVENT DATE: 20161017
